FAERS Safety Report 10865914 (Version 1)
Quarter: 2015Q1

REPORT INFORMATION
  Report Type: Spontaneous
  Country: CH (occurrence: CH)
  Receive Date: 20150224
  Receipt Date: 20150224
  Transmission Date: 20150721
  Serious: Yes (Life-Threatening, Hospitalization, Other)
  Sender: FDA-Public Use
  Company Number: CH-PFIZER INC-2015067489

PATIENT
  Age: 68 Year
  Sex: Male

DRUGS (4)
  1. IVABRADINE [Interacting]
     Active Substance: IVABRADINE
     Indication: TACHYCARDIA PAROXYSMAL
     Dosage: 7.5 MG, BID
     Route: 048
  2. AZITHROMYCIN [Suspect]
     Active Substance: AZITHROMYCIN ANHYDROUS
     Indication: ACUTE SINUSITIS
     Dosage: UNK
  3. IVABRADINE [Interacting]
     Active Substance: IVABRADINE
     Indication: SINUS TACHYCARDIA
  4. SALBUTAMOL SPRAY [Concomitant]
     Indication: BRONCHIAL HYPERREACTIVITY
     Dosage: UNK, AS NEEDED

REACTIONS (4)
  - Torsade de pointes [Recovered/Resolved]
  - Electrocardiogram QT prolonged [Unknown]
  - Syncope [Unknown]
  - Drug interaction [Unknown]
